FAERS Safety Report 23701428 (Version 1)
Quarter: 2024Q2

REPORT INFORMATION
  Report Type: Spontaneous
  Country: US (occurrence: US)
  Receive Date: 20240403
  Receipt Date: 20240403
  Transmission Date: 20240716
  Serious: Yes (Other)
  Sender: FDA-Public Use
  Company Number: US-Vifor (International) Inc.-VIT-2024-02890

PATIENT
  Age: 76 Year
  Sex: Male
  Weight: 97 kg

DRUGS (1)
  1. MIRCERA [Suspect]
     Active Substance: METHOXY POLYETHYLENE GLYCOL-EPOETIN BETA
     Indication: Nephrogenic anaemia
     Dosage: ON 07-MAR-2024 RECEIVED FIRST DOSE AND ON 21-MAR-2024 RECEIVED SECOND DOSE OF MIRCERA
     Route: 040
     Dates: start: 20240307, end: 20240321

REACTIONS (4)
  - Syncope [Recovered/Resolved]
  - Dysgeusia [Recovered/Resolved]
  - Hypotension [Recovered/Resolved]
  - Pruritus [Recovered/Resolved]

NARRATIVE: CASE EVENT DATE: 20240307
